FAERS Safety Report 6027911-8 (Version None)
Quarter: 2008Q4

REPORT INFORMATION
  Report Type: 
  Country: None (occurrence: None)
  Receive Date: 20081230
  Receipt Date: 20081217
  Transmission Date: 20090506
  Serious: Yes (Other)
  Sender: FDA-Public Use
  Company Number: PAR_02482_2008

PATIENT
  Age: 9 Year
  Sex: Male

DRUGS (1)
  1. CLONAZEPAM [Suspect]
     Indication: BLEPHAROSPASM
     Dosage: (1.5 MG QD)

REACTIONS (4)
  - ABNORMAL BEHAVIOUR [None]
  - DISINHIBITION [None]
  - INTENTIONAL SELF-INJURY [None]
  - SUICIDAL IDEATION [None]
